FAERS Safety Report 20522707 (Version 1)
Quarter: 2022Q1

REPORT INFORMATION
  Report Type: Spontaneous
  Country: US (occurrence: US)
  Receive Date: 20220226
  Receipt Date: 20220226
  Transmission Date: 20220423
  Serious: Yes (Other)
  Sender: FDA-Public Use
  Company Number: US-NOVARTISPH-NVSC2022US045681

PATIENT
  Age: 61 Year
  Sex: Female

DRUGS (2)
  1. RANITIDINE [Suspect]
     Active Substance: RANITIDINE
     Indication: Dyspepsia
     Dosage: 150 MG,,OTHER,2X DAILY
     Route: 048
     Dates: start: 201601, end: 202002
  2. RANITIDINE [Suspect]
     Active Substance: RANITIDINE
     Indication: Dyspepsia
     Dosage: 150 MG,,OTHER,2X DAILY
     Route: 048
     Dates: start: 201601, end: 202002

REACTIONS (4)
  - Breast cancer [Recovering/Resolving]
  - Lung neoplasm malignant [Recovering/Resolving]
  - Skin cancer [Recovering/Resolving]
  - Incorrect dose administered [Unknown]

NARRATIVE: CASE EVENT DATE: 20161101
